FAERS Safety Report 4705113-2 (Version None)
Quarter: 2005Q3

REPORT INFORMATION
  Report Type: 
  Country: None (occurrence: None)
  Receive Date: 20050701
  Receipt Date: 20050620
  Transmission Date: 20060218
  Serious: Yes (Other)
  Sender: FDA-Public Use
  Company Number: JP-JNJFOC-20050603632

PATIENT
  Age: 23 Year
  Sex: Male

DRUGS (3)
  1. ITRACONAZOLE [Suspect]
     Route: 049
  2. ITRACONAZOLE [Suspect]
     Route: 049
  3. ITRACONAZOLE [Suspect]
     Indication: ONYCHOMYCOSIS
     Route: 049

REACTIONS (2)
  - HEPATIC FUNCTION ABNORMAL [None]
  - RHABDOMYOLYSIS [None]
